FAERS Safety Report 5829652-6 (Version None)
Quarter: 2008Q3

REPORT INFORMATION
  Report Type: 
  Country: None (occurrence: None)
  Receive Date: 20080729
  Receipt Date: 20080722
  Transmission Date: 20090109
  Serious: Yes (Hospitalization, Disabling)
  Sender: FDA-Public Use
  Company Number: WAES 0804USA00957

PATIENT
  Age: 59 Year
  Sex: Male

DRUGS (8)
  1. COZAAR [Suspect]
     Indication: DIABETIC NEPHROPATHY
     Dosage: 100 MG/DAILY PO
     Route: 048
     Dates: start: 20070112, end: 20071116
  2. COZAAR [Suspect]
     Indication: HYPERTENSION
     Dosage: 100 MG/DAILY PO
     Route: 048
     Dates: start: 20070112, end: 20071116
  3. AMLODIPINE BESYLATE [Concomitant]
  4. DORNER [Concomitant]
  5. MAGMITT [Concomitant]
  6. CYANOCOBALAMIN [Concomitant]
  7. NOVORAPID [Concomitant]
  8. URSO 250 [Concomitant]

REACTIONS (10)
  - BLOOD CREATININE INCREASED [None]
  - BRAIN STEM HAEMORRHAGE [None]
  - CEREBRAL HAEMATOMA [None]
  - DIPLOPIA [None]
  - DRUG INEFFECTIVE [None]
  - HYPOAESTHESIA [None]
  - NAUSEA [None]
  - NO THERAPEUTIC RESPONSE [None]
  - PROTEIN URINE PRESENT [None]
  - VOMITING [None]
